FAERS Safety Report 7466175-5 (Version None)
Quarter: 2011Q2

REPORT INFORMATION
  Report Type: 
  Country: None (occurrence: None)
  Receive Date: 20110509
  Receipt Date: 20110429
  Transmission Date: 20111010
  Serious: Yes (Other)
  Sender: FDA-Public Use
  Company Number: PHHY2010CA56043

PATIENT
  Sex: Female

DRUGS (2)
  1. ZOMETA [Suspect]
     Indication: BREAST CANCER
     Dosage: 4 MG, EVERY 6 MONTHS
     Route: 042
     Dates: start: 20100302
  2. ZOMETA [Suspect]
     Dosage: 4 MG, QMO
     Route: 042
     Dates: start: 20100302

REACTIONS (8)
  - PLEURAL EFFUSION [None]
  - NEOPLASM MALIGNANT [None]
  - ASPARTATE AMINOTRANSFERASE INCREASED [None]
  - DISEASE PROGRESSION [None]
  - WHITE BLOOD CELL COUNT DECREASED [None]
  - PERICARDIAL EFFUSION [None]
  - ALANINE AMINOTRANSFERASE INCREASED [None]
  - MEAN CELL HAEMOGLOBIN DECREASED [None]
